FAERS Safety Report 25392573 (Version 1)
Quarter: 2025Q2

REPORT INFORMATION
  Report Type: Spontaneous
  Country: GB (occurrence: GB)
  Receive Date: 20250603
  Receipt Date: 20250603
  Transmission Date: 20250717
  Serious: Yes (Other)
  Sender: MERCK SHARP & DOHME LLC
  Company Number: GB-009507513-2292088

PATIENT
  Age: 5 Decade
  Sex: Male

DRUGS (2)
  1. PEMBROLIZUMAB [Suspect]
     Active Substance: PEMBROLIZUMAB
     Indication: Metastatic renal cell carcinoma
     Route: 065
     Dates: start: 202311
  2. LENVATINIB [Suspect]
     Active Substance: LENVATINIB
     Indication: Metastatic renal cell carcinoma
     Route: 065
     Dates: start: 202311

REACTIONS (3)
  - Osteonecrosis [Unknown]
  - Nephrectomy [Unknown]
  - Thyroiditis [Unknown]

NARRATIVE: CASE EVENT DATE: 20230101
